FAERS Safety Report 8757846 (Version 2)
Quarter: 2013Q1

REPORT INFORMATION
  Report Type: Spontaneous
  Country: US (occurrence: US)
  Receive Date: 20120828
  Receipt Date: 20130108
  Transmission Date: 20140127
  Serious: Yes (Other)
  Sender: FDA-Public Use
  Company Number: US-ROCHE-1061679

PATIENT
  Sex: Female
  Weight: 86.26 kg

DRUGS (3)
  1. ACCUTANE [Suspect]
     Indication: CUTANEOUS LUPUS ERYTHEMATOSUS
     Route: 065
     Dates: start: 1999, end: 2000
  2. PLAQUENIL [Concomitant]
     Route: 065
     Dates: start: 1999, end: 2000
  3. PREDNISONE [Concomitant]
     Route: 065
     Dates: start: 1999, end: 2000

REACTIONS (5)
  - Colitis ulcerative [Unknown]
  - Inflammatory bowel disease [Unknown]
  - Depression [Unknown]
  - Bipolar disorder [Unknown]
  - Obsessive-compulsive disorder [Unknown]
